FAERS Safety Report 24111933 (Version 1)
Quarter: 2024Q3

REPORT INFORMATION
  Report Type: Spontaneous
  Country: US (occurrence: US)
  Receive Date: 20240718
  Receipt Date: 20240718
  Transmission Date: 20241016
  Serious: No
  Sender: SANOFI AVENTIS
  Company Number: US-SA-SAC20240715001192

PATIENT
  Age: 74 Year
  Sex: Male

DRUGS (2)
  1. DUPIXENT [Suspect]
     Active Substance: DUPILUMAB
     Indication: Eczema
     Dosage: 600MG,1X
     Route: 058
     Dates: start: 20240611, end: 20240611
  2. DUPIXENT [Suspect]
     Active Substance: DUPILUMAB
     Dosage: 300MG,QOW
     Route: 058
     Dates: start: 20240625

REACTIONS (2)
  - Loss of personal independence in daily activities [Unknown]
  - Pruritus [Unknown]

NARRATIVE: CASE EVENT DATE: 20240701
